FAERS Safety Report 7378213-9 (Version None)
Quarter: 2011Q1

REPORT INFORMATION
  Report Type: 
  Country: None (occurrence: None)
  Receive Date: 20110328
  Receipt Date: 20110321
  Transmission Date: 20110831
  Serious: Yes (Other)
  Sender: FDA-Public Use
  Company Number: A0919241A

PATIENT
  Age: 76 Year
  Sex: Female

DRUGS (6)
  1. LISINOPRIL [Concomitant]
  2. LEVOXYL [Concomitant]
  3. PARNATE [Suspect]
     Indication: DEPRESSION
     Dosage: 2TAB PER DAY
     Route: 048
  4. MULTIVITAMIN [Concomitant]
  5. ZETIA [Concomitant]
  6. FUROSEMIDE [Concomitant]

REACTIONS (4)
  - HEART VALVE INCOMPETENCE [None]
  - DYSPNOEA [None]
  - CARDIOMEGALY [None]
  - FATIGUE [None]
